FAERS Safety Report 12949570 (Version 2)
Quarter: 2017Q1

REPORT INFORMATION
  Report Type: Spontaneous
  Country: US (occurrence: US)
  Receive Date: 20161117
  Receipt Date: 20170106
  Transmission Date: 20170428
  Serious: No
  Sender: FDA-Public Use
  Company Number: US-JNJFOC-20161025769

PATIENT
  Age: 36 Month
  Sex: Male
  Weight: 15.42 kg

DRUGS (2)
  1. PEPCID COMPLETE [Suspect]
     Active Substance: CALCIUM CARBONATE\FAMOTIDINE\MAGNESIUM HYDROXIDE
     Indication: ACCIDENTAL EXPOSURE TO PRODUCT BY CHILD
     Route: 048
     Dates: start: 20161027, end: 20161027
  2. PEPCID COMPLETE [Suspect]
     Active Substance: CALCIUM CARBONATE\FAMOTIDINE\MAGNESIUM HYDROXIDE
     Route: 048

REACTIONS (2)
  - Accidental exposure to product by child [Unknown]
  - Product closure issue [Unknown]

NARRATIVE: CASE EVENT DATE: 20161027
